FAERS Safety Report 4343007-5 (Version None)
Quarter: 2004Q2

REPORT INFORMATION
  Report Type: 
  Country: None (occurrence: None)
  Receive Date: 20040421
  Receipt Date: 20040413
  Transmission Date: 20050107
  Serious: Yes (Death, Other)
  Sender: FDA-Public Use
  Company Number: PHEH2004US04183

PATIENT
  Age: 78 Year
  Sex: Male

DRUGS (3)
  1. AREDIA [Suspect]
     Indication: MULTIPLE MYELOMA
     Dosage: UNK,UNK
  2. ZOMETA [Suspect]
     Indication: MULTIPLE MYELOMA
     Dosage: UNK,UNK
  3. ANAESTHETICS, LOCAL [Concomitant]

REACTIONS (13)
  - BONE DEBRIDEMENT [None]
  - BREATH ODOUR [None]
  - DEATH [None]
  - ENDODONTIC PROCEDURE [None]
  - GINGIVAL PAIN [None]
  - ORAL DISCHARGE [None]
  - ORAL PAIN [None]
  - OSTEITIS [None]
  - OSTEOMYELITIS [None]
  - OSTEONECROSIS [None]
  - TOOTH ABSCESS [None]
  - TOOTH EXTRACTION [None]
  - TOOTH FRACTURE [None]
